FAERS Safety Report 19202523 (Version 1)
Quarter: 2021Q2

REPORT INFORMATION
  Report Type: Spontaneous
  Country: JP (occurrence: JP)
  Receive Date: 20210430
  Receipt Date: 20210430
  Transmission Date: 20210717
  Serious: Yes (Other)
  Sender: FDA-Public Use
  Company Number: JP-GLAXOSMITHKLINE-JP2021093818

PATIENT
  Age: 79 Year
  Sex: Male

DRUGS (2)
  1. AVOLVE [Suspect]
     Active Substance: DUTASTERIDE
     Dosage: UNK
     Route: 048
  2. BETANIS [Suspect]
     Active Substance: MIRABEGRON
     Dosage: UNK
     Route: 048

REACTIONS (2)
  - Urinary retention [Unknown]
  - Urine output increased [Unknown]
